FAERS Safety Report 15625902 (Version 1)
Quarter: 2018Q4

REPORT INFORMATION
  Report Type: Spontaneous
  Country: US (occurrence: US)
  Receive Date: 20181116
  Receipt Date: 20181116
  Transmission Date: 20190205
  Serious: Yes (Hospitalization, Other)
  Sender: FDA-Public Use
  Company Number: US-PURDUE-USA-2018-0144961

PATIENT
  Age: 85 Year
  Sex: Female

DRUGS (1)
  1. COLACE [Suspect]
     Active Substance: DOCUSATE SODIUM
     Indication: CONSTIPATION
     Dosage: 100MG X 2 CAPSL, DAILY
     Route: 048

REACTIONS (5)
  - Foreign body in respiratory tract [Not Recovered/Not Resolved]
  - Hospitalisation [Unknown]
  - Hospice care [Not Recovered/Not Resolved]
  - Chronic left ventricular failure [Not Recovered/Not Resolved]
  - Dysgeusia [Not Recovered/Not Resolved]

NARRATIVE: CASE EVENT DATE: 2018
